FAERS Safety Report 7766096-4 (Version None)
Quarter: 2011Q3

REPORT INFORMATION
  Report Type: 
  Country: None (occurrence: None)
  Receive Date: 20110921
  Receipt Date: 20110914
  Transmission Date: 20111222
  Serious: Yes (Other)
  Sender: FDA-Public Use
  Company Number: ES-ASTRAZENECA-2011SE55158

PATIENT
  Age: 22 Year
  Sex: Female

DRUGS (1)
  1. LIDOCAINE+PRILOCAINE [Suspect]
     Indication: LASER THERAPY
     Route: 061

REACTIONS (1)
  - METHAEMOGLOBINAEMIA [None]
